FAERS Safety Report 5283371-6 (Version None)
Quarter: 2007Q1

REPORT INFORMATION
  Report Type: 
  Country: None (occurrence: None)
  Receive Date: 20070328
  Receipt Date: 20070328
  Transmission Date: 20070707
  Serious: Yes (Death)
  Sender: FDA-Public Use
  Company Number: None

PATIENT
  Age: 69 Year
  Sex: Female
  Weight: 63 kg

DRUGS (1)
  1. MDP-BRACCO [Suspect]
     Indication: BONE SCAN
     Dosage: 27MCI  X1  IV  11AM
     Route: 042
     Dates: start: 20070227

REACTIONS (5)
  - BLOOD PRESSURE INCREASED [None]
  - BODY TEMPERATURE DECREASED [None]
  - COUGH [None]
  - HAEMORRHAGE INTRACRANIAL [None]
  - INFUSION RELATED REACTION [None]
